FAERS Safety Report 8106049-X (Version None)
Quarter: 2012Q1

REPORT INFORMATION
  Report Type: 
  Country: None (occurrence: None)
  Receive Date: 20120202
  Receipt Date: 20100121
  Transmission Date: 20120608
  Serious: No
  Sender: FDA-Public Use
  Company Number: 2010BI003194

PATIENT
  Age: 41 Year
  Sex: Female

DRUGS (2)
  1. TYSABRI [Suspect]
     Route: 042
     Dates: start: 20070626, end: 20091201
  2. TYSABRI [Suspect]
     Indication: MULTIPLE SCLEROSIS
     Route: 042
     Dates: start: 20040101, end: 20050201

REACTIONS (8)
  - MOTOR DYSFUNCTION [None]
  - TREMOR [None]
  - HEADACHE [None]
  - FALL [None]
  - HYPOAESTHESIA [None]
  - PARAESTHESIA [None]
  - CLUMSINESS [None]
  - MEMORY IMPAIRMENT [None]
